FAERS Safety Report 5655605-7 (Version None)
Quarter: 2008Q1

REPORT INFORMATION
  Report Type: 
  Country: None (occurrence: None)
  Receive Date: 20080212
  Receipt Date: 20070906
  Transmission Date: 20080703
  Serious: Yes (Other)
  Sender: FDA-Public Use
  Company Number: MC200700582

PATIENT
  Age: 64 Year
  Sex: Female
  Weight: 90.9 kg

DRUGS (5)
  1. ANGIOMAX [Suspect]
     Indication: PERCUTANEOUS CORONARY INTERVENTION
     Dosage: 13.5 ML, BOLUS, IV BOLUS
     Route: 040
     Dates: start: 20070823, end: 20070823
  2. ANGIOMAX [Suspect]
     Dosage: 31.5 ML, HR, INTRAVENOUS ; 4.5 ML, HR, INTRAVENOUS
     Route: 042
     Dates: start: 20070823, end: 20070823
  3. ANGIOMAX [Suspect]
     Dosage: 31.5 ML, HR, INTRAVENOUS ; 4.5 ML, HR, INTRAVENOUS
     Route: 042
     Dates: start: 20070823, end: 20070823
  4. ASPIRIN [Concomitant]
  5. PLAVIX [Concomitant]

REACTIONS (2)
  - CATHETER SITE HAEMORRHAGE [None]
  - THROMBOSIS IN DEVICE [None]
